FAERS Safety Report 21807405 (Version 2)
Quarter: 2023Q1

REPORT INFORMATION
  Report Type: Spontaneous
  Country: US (occurrence: None)
  Receive Date: 20230102
  Receipt Date: 20230315
  Transmission Date: 20230418
  Serious: No
  Sender: FDA-Public Use
  Company Number: 2022A418862

PATIENT
  Sex: Female
  Weight: 55.3 kg

DRUGS (1)
  1. SYMBICORT [Suspect]
     Active Substance: BUDESONIDE\FORMOTEROL FUMARATE DIHYDRATE
     Dosage: 80/4.5 MCG, 2 INHALATIONS 1 TO 2 TIMES A DAY UNKNOWN
     Route: 055

REACTIONS (4)
  - COVID-19 [Unknown]
  - Device use issue [Unknown]
  - Device delivery system issue [Unknown]
  - Product packaging quantity issue [Unknown]
